FAERS Safety Report 8080646-2 (Version None)
Quarter: 2012Q1

REPORT INFORMATION
  Report Type: 
  Country: None (occurrence: None)
  Receive Date: 20120130
  Receipt Date: 20120118
  Transmission Date: 20120608
  Serious: Yes (Other)
  Sender: FDA-Public Use
  Company Number: PHHY2012FR006986

PATIENT

DRUGS (2)
  1. PROGRAF [Concomitant]
     Indication: RENAL TRANSPLANT
  2. MYFORTIC [Suspect]
     Indication: RENAL TRANSPLANT
     Dosage: 720 MG, UNK

REACTIONS (2)
  - RENAL FAILURE [None]
  - GASTROENTERITIS [None]
